FAERS Safety Report 4854009-4 (Version None)
Quarter: 2005Q4

REPORT INFORMATION
  Report Type: 
  Country: None (occurrence: None)
  Receive Date: 20051214
  Receipt Date: 20051005
  Transmission Date: 20060501
  Serious: Yes (Hospitalization)
  Sender: FDA-Public Use
  Company Number: US-MERCK-0510USA04558

PATIENT
  Age: 65 Year
  Sex: Female
  Weight: 85 kg

DRUGS (7)
  1. VIOXX [Suspect]
     Indication: ARTHRITIS
     Route: 048
     Dates: end: 20030501
  2. LIPITOR [Concomitant]
     Route: 065
  3. PREMARIN [Concomitant]
     Route: 065
  4. TENORMIN [Concomitant]
     Route: 065
  5. FERRUM [Concomitant]
     Route: 065
  6. CENTRUM [Concomitant]
     Route: 065
  7. ALLEGRA [Concomitant]
     Route: 065

REACTIONS (16)
  - ADVERSE EVENT [None]
  - ANGINA UNSTABLE [None]
  - ARTERIOSCLEROSIS CORONARY ARTERY [None]
  - ARTHRITIS [None]
  - BACK PAIN [None]
  - BLADDER CANCER [None]
  - CARDIAC DISORDER [None]
  - CHEST PAIN [None]
  - DIABETES MELLITUS [None]
  - FALL [None]
  - GASTROINTESTINAL HAEMORRHAGE [None]
  - HEADACHE [None]
  - HIATUS HERNIA [None]
  - LIMB DISCOMFORT [None]
  - PULMONARY CALCIFICATION [None]
  - TENSION HEADACHE [None]
